FAERS Safety Report 23297929 (Version 3)
Quarter: 2024Q1

REPORT INFORMATION
  Report Type: Spontaneous
  Country: US (occurrence: US)
  Receive Date: 20231214
  Receipt Date: 20240118
  Transmission Date: 20240409
  Serious: No
  Sender: FDA-Public Use
  Company Number: US-REATA PHARMACEUTICALS INC.-2023USRTAOMA000650

PATIENT

DRUGS (1)
  1. SKYCLARYS [Suspect]
     Active Substance: OMAVELOXOLONE
     Indication: Friedreich^s ataxia
     Dosage: UNK
     Route: 048
     Dates: start: 2023, end: 2023

REACTIONS (1)
  - Brain natriuretic peptide increased [Unknown]

NARRATIVE: CASE EVENT DATE: 20231010
